FAERS Safety Report 7470856-7 (Version None)
Quarter: 2011Q2

REPORT INFORMATION
  Report Type: 
  Country: None (occurrence: None)
  Receive Date: 20110502
  Receipt Date: 20110422
  Transmission Date: 20111010
  Serious: Yes (Death)
  Sender: FDA-Public Use
  Company Number: 2011001898

PATIENT
  Age: 52 Year
  Sex: Male

DRUGS (1)
  1. TARCEVA [Suspect]
     Indication: LUNG NEOPLASM MALIGNANT
     Dosage: (150 MG,DAILY),ORAL
     Route: 048
     Dates: start: 20110307

REACTIONS (3)
  - RESPIRATORY FAILURE [None]
  - PERICARDIAL EFFUSION [None]
  - CEREBROVASCULAR ACCIDENT [None]
